FAERS Safety Report 16969484 (Version 1)
Quarter: 2019Q4

REPORT INFORMATION
  Report Type: Spontaneous
  Country: US (occurrence: US)
  Receive Date: 20191029
  Receipt Date: 20191029
  Transmission Date: 20200122
  Serious: No
  Sender: FDA-Public Use
  Company Number: US-DRREDDYS-USA/USA/19/0115433

PATIENT
  Sex: Female
  Weight: 81 kg

DRUGS (1)
  1. HABITROL [Suspect]
     Active Substance: NICOTINE
     Indication: TOBACCO USER
     Route: 062

REACTIONS (3)
  - Drug ineffective [Recovered/Resolved]
  - Treatment noncompliance [Unknown]
  - Product quality issue [Unknown]
